FAERS Safety Report 10045347 (Version 2)
Quarter: 2014Q2

REPORT INFORMATION
  Report Type: Spontaneous
  Country: US (occurrence: US)
  Receive Date: 20140328
  Receipt Date: 20140421
  Transmission Date: 20141212
  Serious: Yes (Hospitalization)
  Sender: FDA-Public Use
  Company Number: US-JNJFOC-20140314257

PATIENT
  Age: 62 Year
  Sex: Male
  Weight: 83.46 kg

DRUGS (3)
  1. NUCYNTA IR [Suspect]
     Indication: NEURALGIA
     Route: 048
     Dates: start: 201402, end: 201403
  2. NUCYNTA ER [Suspect]
     Indication: PAIN
     Route: 048
     Dates: start: 201403
  3. HYDROCODONE [Concomitant]
     Indication: BREAKTHROUGH PAIN
     Route: 048
     Dates: start: 20140315

REACTIONS (4)
  - Breakthrough pain [Not Recovered/Not Resolved]
  - Spinal fusion surgery [Recovered/Resolved]
  - Drug effect incomplete [Unknown]
  - Underdose [Not Recovered/Not Resolved]
